FAERS Safety Report 6711772-5 (Version None)
Quarter: 2010Q2

REPORT INFORMATION
  Report Type: 
  Country: None (occurrence: None)
  Receive Date: 20100505
  Receipt Date: 20100427
  Transmission Date: 20101027
  Serious: Yes (Hospitalization)
  Sender: FDA-Public Use
  Company Number: B0647252A

PATIENT
  Sex: Female
  Weight: 44 kg

DRUGS (6)
  1. VALTREX [Suspect]
     Indication: HERPES ZOSTER
     Dosage: 3000MG PER DAY
     Route: 048
     Dates: start: 20100224, end: 20100226
  2. ACYCRIL [Concomitant]
     Indication: HERPES ZOSTER
     Dosage: 750MG PER DAY
     Route: 042
     Dates: start: 20100227, end: 20100301
  3. ACYCRIL [Concomitant]
     Dosage: 500MG PER DAY
     Route: 042
     Dates: start: 20100302, end: 20100305
  4. RHEUMATREX [Concomitant]
     Indication: MUSCULOSKELETAL PAIN
     Dosage: 4MG PER DAY
     Route: 048
  5. KENTAN [Concomitant]
     Indication: PAIN
     Dosage: 180MG PER DAY
     Route: 048
     Dates: start: 20100227
  6. ALUSA [Concomitant]
     Dosage: 300MG PER DAY
     Route: 048
     Dates: start: 20100227

REACTIONS (1)
  - LIVER DISORDER [None]
